FAERS Safety Report 15837130 (Version 1)
Quarter: 2019Q1

REPORT INFORMATION
  Report Type: Spontaneous
  Country: US (occurrence: US)
  Receive Date: 20190117
  Receipt Date: 20190117
  Transmission Date: 20190417
  Serious: No
  Sender: FDA-Public Use
  Company Number: US-CELGENEUS-USA-20181202472

PATIENT
  Sex: Female
  Weight: 70.37 kg

DRUGS (28)
  1. THALOMID [Suspect]
     Active Substance: THALIDOMIDE
     Dosage: 300 MILLIGRAM
     Route: 048
     Dates: start: 20180912
  2. KETOCONAZOLE. [Concomitant]
     Active Substance: KETOCONAZOLE
     Indication: PRODUCT USED FOR UNKNOWN INDICATION
     Dosage: 12.5MG-15MG-17.5 MG-20MG
     Route: 061
  3. OXCARBAZEPINE. [Concomitant]
     Active Substance: OXCARBAZEPINE
     Indication: PRODUCT USED FOR UNKNOWN INDICATION
     Dosage: 1 TABLET BY MOUTH EVERY MORNING, 450MG EVERY EVENING
     Route: 048
  4. MAPAP [Concomitant]
     Active Substance: ACETAMINOPHEN
     Indication: MUSCULOSKELETAL DISCOMFORT
  5. LORATADINE. [Concomitant]
     Active Substance: LORATADINE
     Indication: PRODUCT USED FOR UNKNOWN INDICATION
     Dosage: 10 MILLIGRAM
     Route: 048
  6. TRIPLE ANTIBIOTIC [Concomitant]
     Indication: PRODUCT USED FOR UNKNOWN INDICATION
     Dosage: 3.5 MG-400 UNIT-5000 UNIT/GRAM
     Route: 061
  7. THALOMID [Suspect]
     Active Substance: THALIDOMIDE
     Dosage: 350 MILLIGRAM
     Route: 048
     Dates: start: 201812
  8. LAMICTAL [Concomitant]
     Active Substance: LAMOTRIGINE
     Dosage: 1 TABLET BY MOUTH IN THE MORNING,2 EVERY EVENING
     Route: 048
  9. LINZESS [Concomitant]
     Active Substance: LINACLOTIDE
     Indication: PRODUCT USED FOR UNKNOWN INDICATION
     Route: 048
  10. CELEBREX [Concomitant]
     Active Substance: CELECOXIB
     Indication: PRODUCT USED FOR UNKNOWN INDICATION
     Dosage: 400 MILLIGRAM
     Route: 048
  11. TRILEPTAL [Concomitant]
     Active Substance: OXCARBAZEPINE
     Indication: PRODUCT USED FOR UNKNOWN INDICATION
     Route: 048
  12. DRONABINOL. [Concomitant]
     Active Substance: DRONABINOL
     Indication: ANXIETY
  13. MAPAP [Concomitant]
     Active Substance: ACETAMINOPHEN
     Indication: HEADACHE
     Dosage: 2 TABLETS EVERY 4 HRS
     Route: 048
  14. MAPAP [Concomitant]
     Active Substance: ACETAMINOPHEN
     Indication: PYREXIA
  15. KEPPRA [Concomitant]
     Active Substance: LEVETIRACETAM
     Indication: PRODUCT USED FOR UNKNOWN INDICATION
     Route: 048
  16. THALOMID [Suspect]
     Active Substance: THALIDOMIDE
     Indication: INFLAMMATION
     Dosage: 200 MILLIGRAM
     Route: 048
     Dates: start: 201309
  17. DEPO-PROVERA [Concomitant]
     Active Substance: MEDROXYPROGESTERONE ACETATE
     Indication: PRODUCT USED FOR UNKNOWN INDICATION
     Dosage: 150 MILLIGRAM/MILLILITERS
     Route: 030
  18. LAMICTAL [Concomitant]
     Active Substance: LAMOTRIGINE
     Indication: PRODUCT USED FOR UNKNOWN INDICATION
     Route: 048
  19. DRONABINOL. [Concomitant]
     Active Substance: DRONABINOL
     Indication: SEIZURE
     Dosage: 20 MILLIGRAM
     Route: 048
     Dates: start: 20181203
  20. DIASTAT ACUDIAL [Concomitant]
     Active Substance: DIAZEPAM
     Indication: SEIZURE
     Dosage: 12.5MG-15MG-17.5 MG-20MG
     Route: 054
  21. MAPAP [Concomitant]
     Active Substance: ACETAMINOPHEN
     Indication: MUSCULOSKELETAL DISCOMFORT
  22. VITAMIN B-6 [Concomitant]
     Active Substance: PYRIDOXINE
     Indication: SUPPLEMENTATION THERAPY
     Dosage: 100 MILLIGRAM
     Route: 048
  23. TOPAMAX [Concomitant]
     Active Substance: TOPIRAMATE
     Indication: PRODUCT USED FOR UNKNOWN INDICATION
     Route: 048
  24. VITAMIN D3 [Concomitant]
     Active Substance: CHOLECALCIFEROL
     Indication: PRODUCT USED FOR UNKNOWN INDICATION
     Dosage: 2000 IU (INTERNATIONAL UNIT)
     Route: 048
  25. MIRALAX [Concomitant]
     Active Substance: POLYETHYLENE GLYCOL 3350
     Indication: PRODUCT USED FOR UNKNOWN INDICATION
     Route: 048
  26. THALOMID [Suspect]
     Active Substance: THALIDOMIDE
     Indication: ACQUIRED EPILEPTIC APHASIA
     Dosage: 300-100 MILLIGRAM
     Route: 048
     Dates: start: 201310
  27. THALOMID [Suspect]
     Active Substance: THALIDOMIDE
     Indication: OFF LABEL USE
     Dosage: 150-300 MILLIGRAM
     Route: 048
     Dates: start: 201706
  28. LINZESS [Concomitant]
     Active Substance: LINACLOTIDE
     Dosage: 290 MICROGRAM
     Route: 048

REACTIONS (2)
  - Decreased immune responsiveness [Unknown]
  - Urinary tract infection [Unknown]
